FAERS Safety Report 4899387-5 (Version None)
Quarter: 2006Q1

REPORT INFORMATION
  Report Type: 
  Country: None (occurrence: None)
  Receive Date: 20060131
  Receipt Date: 20060123
  Transmission Date: 20060701
  Serious: Yes (Other)
  Sender: FDA-Public Use
  Company Number: GB-2006-001555

PATIENT
  Sex: Female

DRUGS (1)
  1. YASMIN [Suspect]
     Dates: start: 20051218

REACTIONS (7)
  - BLOOD TEST ABNORMAL [None]
  - HEPATITIS [None]
  - MALAISE [None]
  - PREGNANCY ON ORAL CONTRACEPTIVE [None]
  - STOMACH DISCOMFORT [None]
  - WEIGHT DECREASED [None]
  - YELLOW SKIN [None]
